FAERS Safety Report 10216796 (Version 2)
Quarter: 2014Q2

REPORT INFORMATION
  Report Type: Other
  Country: CA (occurrence: CA)
  Receive Date: 20140604
  Receipt Date: 20140604
  Transmission Date: 20141212
  Serious: Yes (Hospitalization, Other)
  Sender: FDA-Public Use
  Company Number: CA-GSKPPD-2014GSK033334

PATIENT
  Age: 68 Year
  Sex: Female

DRUGS (6)
  1. AVANDIA [Suspect]
     Indication: DIABETES MELLITUS
     Dosage: DATES OF AVANDIA USE COULD NOT BE CONFIRMED IN RECORDS REVIEW.
     Route: 048
  2. COUMADIN [Concomitant]
  3. NITRO-DUR [Concomitant]
  4. ATENOLOL [Concomitant]
  5. ASPIRIN [Concomitant]
  6. LASIX [Concomitant]

REACTIONS (6)
  - Cardiac stress test [None]
  - Acute coronary syndrome [None]
  - Atrial fibrillation [Recovered/Resolved]
  - Bradycardia [Recovered/Resolved]
  - Coronary artery disease [Recovered/Resolved]
  - Atrioventricular block [Recovered/Resolved]
